FAERS Safety Report 21557988 (Version 1)
Quarter: 2022Q4

REPORT INFORMATION
  Report Type: Report from Study
  Country: CA (occurrence: CA)
  Receive Date: 20221106
  Receipt Date: 20221106
  Transmission Date: 20230113
  Serious: Yes (Other)
  Sender: FDA-Public Use
  Company Number: CA-GILEAD-2022-0584347

PATIENT
  Sex: Female

DRUGS (8)
  1. SACITUZUMAB GOVITECAN [Suspect]
     Active Substance: SACITUZUMAB GOVITECAN
     Indication: Triple negative breast cancer
     Dosage: 704 MG, C1D1 AND D8
     Route: 042
     Dates: start: 20220525, end: 20221012
  2. SACITUZUMAB GOVITECAN [Suspect]
     Active Substance: SACITUZUMAB GOVITECAN
     Dosage: 718 MG, CYCLE 2, DAY 1
     Route: 042
     Dates: start: 20220622
  3. SACITUZUMAB GOVITECAN [Suspect]
     Active Substance: SACITUZUMAB GOVITECAN
     Dosage: C3D1 AND D8
     Route: 042
     Dates: start: 20220713, end: 20220727
  4. SACITUZUMAB GOVITECAN [Suspect]
     Active Substance: SACITUZUMAB GOVITECAN
     Dosage: 696 MG, C4D1
     Route: 042
     Dates: start: 20220817, end: 20220817
  5. SACITUZUMAB GOVITECAN [Suspect]
     Active Substance: SACITUZUMAB GOVITECAN
     Dosage: 691 MG
     Route: 042
     Dates: start: 20220914
  6. SACITUZUMAB GOVITECAN [Suspect]
     Active Substance: SACITUZUMAB GOVITECAN
     Dosage: C5D1 AND D8
     Route: 042
     Dates: start: 20220907, end: 20220914
  7. SACITUZUMAB GOVITECAN [Suspect]
     Active Substance: SACITUZUMAB GOVITECAN
     Dosage: C6D1
     Route: 042
     Dates: start: 20220928
  8. SACITUZUMAB GOVITECAN [Suspect]
     Active Substance: SACITUZUMAB GOVITECAN
     Dosage: C6D8
     Route: 042
     Dates: start: 20221012

REACTIONS (11)
  - Disease progression [Unknown]
  - Weight decreased [Unknown]
  - Blood creatinine increased [Unknown]
  - Haemoglobin decreased [Unknown]
  - Neutrophil count decreased [Unknown]
  - Weight increased [Unknown]
  - Inappropriate schedule of product administration [Unknown]
  - Inappropriate schedule of product administration [Recovered/Resolved]
  - Weight decreased [Unknown]
  - Weight fluctuation [Unknown]
  - Neutrophil count decreased [Not Recovered/Not Resolved]

NARRATIVE: CASE EVENT DATE: 20220101
